FAERS Safety Report 12225088 (Version 3)
Quarter: 2016Q2

REPORT INFORMATION
  Report Type: Report from Study
  Country: US (occurrence: US)
  Receive Date: 20160331
  Receipt Date: 20160423
  Transmission Date: 20160815
  Serious: Yes (Death)
  Sender: FDA-Public Use
  Company Number: PHEH2016US007733

PATIENT
  Sex: Female

DRUGS (1)
  1. ZOMETA [Suspect]
     Active Substance: ZOLEDRONIC ACID
     Indication: METASTASES TO BONE
     Dosage: 4 MG, UNK
     Route: 042
     Dates: start: 20140825, end: 20150706

REACTIONS (4)
  - Lung carcinoma cell type unspecified stage IV [Fatal]
  - Metastases to bone [Fatal]
  - Malignant neoplasm progression [Fatal]
  - Metastases to central nervous system [Fatal]
